FAERS Safety Report 16583324 (Version 1)
Quarter: 2019Q3

REPORT INFORMATION
  Report Type: Spontaneous
  Country: FR (occurrence: FR)
  Receive Date: 20190717
  Receipt Date: 20190717
  Transmission Date: 20191004
  Serious: Yes (Hospitalization)
  Sender: FDA-Public Use
  Company Number: FR-TEVA-2019-FR-1077208

PATIENT
  Age: 87 Year
  Sex: Female

DRUGS (13)
  1. FLECTOR [Concomitant]
     Active Substance: DICLOFENAC EPOLAMINE
  2. TENORMINE [Concomitant]
     Active Substance: ATENOLOL
  3. ZYLORIC [Concomitant]
     Active Substance: ALLOPURINOL
  4. LEVOTHYROXINE SODIQUE [Concomitant]
     Active Substance: LEVOTHYROXINE SODIUM
  5. COTAREG 160 MG/25 MG, FILMED TABLET [Suspect]
     Active Substance: HYDROCHLOROTHIAZIDE\VALSARTAN
     Indication: HYPERTENSION
     Dosage: 1 DOSAGE FORMS DAILY; 1 TABLET PER DAY
     Route: 048
  6. GINKGO (EXTRAIT SEC RAFFINE ET QUANTIFIE DE) [Concomitant]
  7. KARDEGIC [Concomitant]
     Active Substance: ASPIRIN DL-LYSINE
  8. CHOLECALCIFEROL [Concomitant]
     Active Substance: CHOLECALCIFEROL
  9. FLUDEX 1.5 MG, LONG-RELEASE FILM TABLET [Suspect]
     Active Substance: INDAPAMIDE
     Indication: HYPERTENSION
     Dosage: 1 DOSAGE FORMS DAILY;
     Route: 048
  10. FLUOXETINE (CHLORHYDRATE DE) [Suspect]
     Active Substance: FLUOXETINE HYDROCHLORIDE
     Indication: DEPRESSION
     Route: 048
     Dates: start: 20190608
  11. DIOSMINE [Concomitant]
     Active Substance: DIOSMIN
  12. INEGY [Concomitant]
     Active Substance: EZETIMIBE\SIMVASTATIN
  13. BROMAZEPAM [Concomitant]
     Active Substance: BROMAZEPAM

REACTIONS (4)
  - Confusional state [Not Recovered/Not Resolved]
  - Hypokalaemia [Not Recovered/Not Resolved]
  - Inappropriate antidiuretic hormone secretion [Not Recovered/Not Resolved]
  - Hyponatraemia [Not Recovered/Not Resolved]

NARRATIVE: CASE EVENT DATE: 20190622
